FAERS Safety Report 7219363-7 (Version None)
Quarter: 2011Q1

REPORT INFORMATION
  Report Type: 
  Country: None (occurrence: None)
  Receive Date: 20110111
  Receipt Date: 20110107
  Transmission Date: 20110831
  Serious: No
  Sender: FDA-Public Use
  Company Number: US-PFIZER INC-2011004840

PATIENT
  Sex: Female

DRUGS (2)
  1. MIRENA [Suspect]
     Indication: CONTRACEPTION
     Dosage: UNK
  2. CHANTIX [Suspect]
     Dosage: UNK

REACTIONS (3)
  - BREAST SWELLING [None]
  - PELVIC DISCOMFORT [None]
  - BREAST TENDERNESS [None]
